FAERS Safety Report 6839993-1 (Version None)
Quarter: 2010Q2

REPORT INFORMATION
  Report Type: 
  Country: None (occurrence: None)
  Receive Date: 20100629
  Receipt Date: 20100527
  Transmission Date: 20101027
  Serious: No
  Sender: FDA-Public Use
  Company Number: US-WYE-H15439810

PATIENT
  Age: 55 Year
  Sex: Female
  Weight: 72.64 kg

DRUGS (4)
  1. PRISTIQ [Suspect]
     Indication: DEPRESSION
     Dosage: 50 MG 1X PER 1 DAY
     Dates: start: 20100101
  2. CLONAZEPAM [Concomitant]
  3. ZOLPIDEM (ZOLPEDEM) [Concomitant]
  4. GUAIFENESIN [Concomitant]

REACTIONS (3)
  - CONDITION AGGRAVATED [None]
  - HEART RATE IRREGULAR [None]
  - INCORRECT DOSE ADMINISTERED [None]
